FAERS Safety Report 14508295 (Version 2)
Quarter: 2020Q3

REPORT INFORMATION
  Report Type: Report from Study
  Country: JP (occurrence: JP)
  Receive Date: 20180209
  Receipt Date: 20180221
  Transmission Date: 20201104
  Serious: Yes (Hospitalization)
  Sender: FDA-Public Use
  Company Number: JP-ROCHE-2067407

PATIENT
  Age: 70 Year
  Sex: Female
  Weight: 53 kg

DRUGS (9)
  1. CALONAL [Concomitant]
     Active Substance: ACETAMINOPHEN
     Indication: PAIN
     Dosage: TWO/TIME?THE BEGINNING OF DOSAGE DAY: BEFORE THE BEGINNING OF DOSAGE OF THE INVESTIGATION AL AGENT
     Route: 048
  2. OPSO [Concomitant]
     Active Substance: MORPHINE HYDROCHLORIDE
     Indication: PAIN
     Dosage: THE BEGINNING OF DOSAGE DAY: BEFORE THE BEGINNING OF DOSAGE OF THE INVESTIGATION?AL AGENT
     Route: 048
  3. PARIET [Concomitant]
     Active Substance: RABEPRAZOLE SODIUM
     Indication: GASTROOESOPHAGEAL REFLUX DISEASE
     Dosage: THE BEGINNING OF DOSAGE DAY: BEFORE THE BEGINNING OF DOSAGE OF THE INVESTIGATION?AL AGENT
     Route: 048
  4. DENOTAS [Concomitant]
     Active Substance: CALCIUM CARBONATE\CHOLECALCIFEROL\MAGNESIUM CARBONATE
     Indication: PAIN
     Dosage: THE BEGINNING OF DOSAGE DAY: BEFORE THE BEGINNING OF DOSAGE OF THE INVESTIGATIONAL AGENT
     Route: 048
  5. RINDERON V [Concomitant]
     Active Substance: BETAMETHASONE VALERATE
     Indication: RASH MACULO-PAPULAR
     Dosage: PROPER QUANTITY
     Route: 061
     Dates: start: 20180117
  6. CALONAL [Concomitant]
     Active Substance: ACETAMINOPHEN
     Indication: PYREXIA
     Route: 065
  7. PREDNISOLONE. [Concomitant]
     Active Substance: PREDNISOLONE
     Route: 065
  8. HEPARINOID [Concomitant]
     Active Substance: CHONDROITIN SULFATE (BOVINE)
     Indication: RASH MACULO-PAPULAR
     Dosage: PROPER QUANTITY
     Route: 061
     Dates: start: 20180118
  9. ALECTINIB. [Suspect]
     Active Substance: ALECTINIB
     Indication: NON-SMALL CELL LUNG CANCER
     Route: 048
     Dates: start: 20180117, end: 20180125

REACTIONS (1)
  - Pneumonitis [Not Recovered/Not Resolved]

NARRATIVE: CASE EVENT DATE: 20180125
